FAERS Safety Report 15276653 (Version 1)
Quarter: 2018Q3

REPORT INFORMATION
  Report Type: Spontaneous
  Country: US (occurrence: US)
  Receive Date: 20180729
  Receipt Date: 20180729
  Transmission Date: 20181010
  Serious: Yes (Other)
  Sender: FDA-Public Use
  Company Number: None

PATIENT
  Sex: Female

DRUGS (1)
  1. AIMOVIG [Suspect]
     Active Substance: ERENUMAB-AOOE
     Indication: MIGRAINE
     Dates: start: 20180712

REACTIONS (7)
  - Constipation [None]
  - Influenza like illness [None]
  - Pain [None]
  - Migraine [None]
  - Depressed level of consciousness [None]
  - Fatigue [None]
  - Sleep disorder [None]

NARRATIVE: CASE EVENT DATE: 20180712
